FAERS Safety Report 12674420 (Version 1)
Quarter: 2016Q3

REPORT INFORMATION
  Report Type: Spontaneous
  Country: US (occurrence: US)
  Receive Date: 20160822
  Receipt Date: 20160822
  Transmission Date: 20161109
  Serious: No
  Sender: FDA-Public Use
  Company Number: US-BEH-2016059133

PATIENT
  Sex: Female
  Weight: 62.6 kg

DRUGS (30)
  1. ZEMAIRA [Suspect]
     Active Substance: .ALPHA.1-PROTEINASE INHIBITOR HUMAN
     Indication: ALPHA-1 ANTI-TRYPSIN DEFICIENCY
     Dosage: 972 MG/VL
     Route: 042
  2. BIOTIN [Concomitant]
     Active Substance: BIOTIN
  3. GARLIC. [Concomitant]
     Active Substance: GARLIC
  4. VITAMIN B12 [Concomitant]
     Active Substance: CYANOCOBALAMIN
  5. TRAZODONE [Concomitant]
     Active Substance: TRAZODONE HYDROCHLORIDE
  6. VITAMIN E [Concomitant]
     Active Substance: .ALPHA.-TOCOPHEROL
  7. CALCIUM + D [Concomitant]
     Active Substance: CALCIUM\VITAMIN D
  8. PREDNISONE. [Concomitant]
     Active Substance: PREDNISONE
  9. AZITHROMYCIN ANHYDROUS. [Concomitant]
     Active Substance: AZITHROMYCIN ANHYDROUS
  10. PROAIR HFA [Concomitant]
     Active Substance: ALBUTEROL SULFATE
  11. NORCO [Concomitant]
     Active Substance: ACETAMINOPHEN\HYDROCODONE BITARTRATE
  12. BUSPIRONE [Concomitant]
     Active Substance: BUSPIRONE HYDROCHLORIDE
  13. TIZANIDINE. [Concomitant]
     Active Substance: TIZANIDINE
  14. SYMBICORT [Concomitant]
     Active Substance: BUDESONIDE\FORMOTEROL FUMARATE DIHYDRATE
  15. HYDROCHLORTHIAZIDE [Concomitant]
     Active Substance: HYDROCHLOROTHIAZIDE
  16. LIDOCAINE. [Concomitant]
     Active Substance: LIDOCAINE
  17. NAPROSYN [Concomitant]
     Active Substance: NAPROXEN
  18. ASPIRIN. [Concomitant]
     Active Substance: ASPIRIN
  19. GABAPENTIN. [Concomitant]
     Active Substance: GABAPENTIN
  20. VOLTAREN [Concomitant]
     Active Substance: DICLOFENAC SODIUM
  21. ALBUTEROL. [Concomitant]
     Active Substance: ALBUTEROL
  22. FENTANYL. [Concomitant]
     Active Substance: FENTANYL
  23. DIPHENHYDRAMINE. [Concomitant]
     Active Substance: DIPHENHYDRAMINE
  24. PYRIDOXINE [Concomitant]
     Active Substance: PYRIDOXINE
  25. FISH OIL [Concomitant]
     Active Substance: FISH OIL
  26. OMEPRAZOLE. [Concomitant]
     Active Substance: OMEPRAZOLE
  27. SODIUM CHLORIDE. [Concomitant]
     Active Substance: SODIUM CHLORIDE
  28. EPIPEN [Concomitant]
     Active Substance: EPINEPHRINE
  29. SPIRIVA [Concomitant]
     Active Substance: TIOTROPIUM BROMIDE MONOHYDRATE
  30. GLUCOSAMINE [Concomitant]
     Active Substance: GLUCOSAMINE

REACTIONS (1)
  - Dyspnoea [Unknown]
